FAERS Safety Report 18610201 (Version 1)
Quarter: 2020Q4

REPORT INFORMATION
  Report Type: Spontaneous
  Country: BR (occurrence: BR)
  Receive Date: 20201214
  Receipt Date: 20201214
  Transmission Date: 20210114
  Serious: Yes (Other)
  Sender: FDA-Public Use
  Company Number: BR-ACCORD-210888

PATIENT
  Age: 83 Year
  Sex: Female

DRUGS (3)
  1. TRAMETINIB [Suspect]
     Active Substance: TRAMETINIB
     Indication: METASTASES TO LUNG
     Route: 048
     Dates: start: 202003, end: 202005
  2. TRAMETINIB [Suspect]
     Active Substance: TRAMETINIB
     Indication: PANCREATIC CARCINOMA METASTATIC
     Route: 048
     Dates: start: 202003, end: 202005
  3. HYDROXYCHLOROQUINE [Suspect]
     Active Substance: HYDROXYCHLOROQUINE
     Indication: PANCREATIC CARCINOMA METASTATIC
     Route: 048
     Dates: start: 202003, end: 202005

REACTIONS (2)
  - Skin ulcer [Unknown]
  - Rash pustular [Unknown]

NARRATIVE: CASE EVENT DATE: 202005
